FAERS Safety Report 9345292 (Version 9)
Quarter: 2015Q1

REPORT INFORMATION
  Report Type: Report from Study
  Country: BR (occurrence: BR)
  Receive Date: 20130613
  Receipt Date: 20150317
  Transmission Date: 20150721
  Serious: Yes (Life-Threatening, Hospitalization)
  Sender: FDA-Public Use
  Company Number: BR-ROCHE-1033166

PATIENT
  Age: 48 Year
  Sex: Male
  Weight: 68 kg

DRUGS (10)
  1. CALCIUM CARBONATE. [Concomitant]
     Active Substance: CALCIUM CARBONATE
     Indication: OSTEOPENIA
     Route: 048
     Dates: start: 2008
  2. AZATHIOPRINE. [Suspect]
     Active Substance: AZATHIOPRINE
     Indication: MYOPATHY
     Route: 048
     Dates: start: 2010
  3. MABTHERA [Suspect]
     Active Substance: RITUXIMAB
     Indication: RHEUMATOID ARTHRITIS
     Route: 042
     Dates: start: 20130523
  4. PREDNISONE. [Suspect]
     Active Substance: PREDNISONE
     Indication: MYOPATHY
     Route: 048
     Dates: start: 2008
  5. PREDNISONE. [Suspect]
     Active Substance: PREDNISONE
     Route: 048
     Dates: start: 2008
  6. MABTHERA [Suspect]
     Active Substance: RITUXIMAB
     Indication: MYOPATHY
     Dosage: 1G / DOSE
     Route: 042
     Dates: start: 20110701
  7. AZATHIOPRINE. [Suspect]
     Active Substance: AZATHIOPRINE
     Route: 048
  8. AZATHIOPRINE. [Suspect]
     Active Substance: AZATHIOPRINE
     Route: 048
  9. OMEPRAZOLE. [Concomitant]
     Active Substance: OMEPRAZOLE
     Indication: GASTRIC DISORDER
     Route: 065
  10. ALENDRONATE [Concomitant]
     Active Substance: ALENDRONATE SODIUM
     Indication: OSTEOPOROSIS
     Route: 048
     Dates: start: 2010

REACTIONS (18)
  - Movement disorder [Not Recovered/Not Resolved]
  - Pyrexia [Not Recovered/Not Resolved]
  - Headache [Not Recovered/Not Resolved]
  - Dermatomyositis [Unknown]
  - Memory impairment [Unknown]
  - Visual impairment [Unknown]
  - Central nervous system lesion [Not Recovered/Not Resolved]
  - Hyperhidrosis [Recovered/Resolved]
  - Influenza [Unknown]
  - Brain injury [Not Recovered/Not Resolved]
  - Pneumonia [Recovered/Resolved]
  - Cognitive disorder [Not Recovered/Not Resolved]
  - Ataxia [Unknown]
  - Vision blurred [Not Recovered/Not Resolved]
  - Blood pressure decreased [Recovered/Resolved]
  - Cough [Unknown]
  - Nervous system disorder [Unknown]
  - Feeling cold [Recovered/Resolved]

NARRATIVE: CASE EVENT DATE: 20111220
